FAERS Safety Report 16685408 (Version 1)
Quarter: 2019Q3

REPORT INFORMATION
  Report Type: Spontaneous
  Country: DE (occurrence: DE)
  Receive Date: 20190809
  Receipt Date: 20190809
  Transmission Date: 20191004
  Serious: Yes (Other)
  Sender: FDA-Public Use
  Company Number: DE-SA-2019SA212481

PATIENT
  Age: 26 Year
  Sex: Female
  Weight: 60 kg

DRUGS (4)
  1. LEMTRADA [Suspect]
     Active Substance: ALEMTUZUMAB
     Dosage: 12 MG
     Route: 041
     Dates: start: 20190709, end: 20190710
  2. TERBIGALEN [Concomitant]
     Indication: ONYCHOMYCOSIS
     Dosage: UNK UNK, QD
     Route: 065
  3. PANTOPRAZOLE [Concomitant]
     Active Substance: PANTOPRAZOLE
     Indication: PREMEDICATION
     Dosage: 20 MG, QD
     Route: 065
  4. LEMTRADA [Suspect]
     Active Substance: ALEMTUZUMAB
     Indication: MULTIPLE SCLEROSIS
     Dosage: 12 MG, UNK
     Route: 041
     Dates: start: 20180601

REACTIONS (15)
  - Myocardial infarction [Unknown]
  - Multiple sclerosis relapse [Unknown]
  - Coordination abnormal [Recovered/Resolved]
  - Immature granulocyte percentage increased [Recovered/Resolved]
  - Eosinophil count increased [Recovered/Resolved]
  - Lymphocyte count decreased [Not Recovered/Not Resolved]
  - Basophil percentage increased [Recovered/Resolved]
  - Liver function test abnormal [Unknown]
  - Paraesthesia [Recovered/Resolved]
  - Eosinophil percentage increased [Recovered/Resolved]
  - Vascular dissection [Unknown]
  - Bladder dysfunction [Unknown]
  - Sensory disturbance [Unknown]
  - Hypoaesthesia [Unknown]
  - White blood cell disorder [Unknown]

NARRATIVE: CASE EVENT DATE: 201905
